FAERS Safety Report 6773448-8 (Version None)
Quarter: 2010Q2

REPORT INFORMATION
  Report Type: 
  Country: None (occurrence: None)
  Receive Date: 20100616
  Receipt Date: 20100610
  Transmission Date: 20101027
  Serious: Yes (Hospitalization)
  Sender: FDA-Public Use
  Company Number: PH-MERCK-1006PHL00013

PATIENT

DRUGS (3)
  1. JANUMET [Suspect]
     Indication: DIABETES MELLITUS
     Route: 048
     Dates: start: 20100601
  2. GLIMEPIRIDE [Concomitant]
     Route: 048
  3. HYDROCHLOROTHIAZIDE AND IRBESARTAN [Concomitant]
     Route: 048

REACTIONS (1)
  - ATRIOVENTRICULAR BLOCK FIRST DEGREE [None]
